FAERS Safety Report 22096059 (Version 1)
Quarter: 2023Q1

REPORT INFORMATION
  Report Type: Spontaneous
  Country: US (occurrence: US)
  Receive Date: 20230315
  Receipt Date: 20230315
  Transmission Date: 20230417
  Serious: No
  Sender: FDA-Public Use
  Company Number: US-ELI_LILLY_AND_COMPANY-US202303006739

PATIENT
  Age: 52 Year

DRUGS (2)
  1. TRULICITY [Suspect]
     Active Substance: DULAGLUTIDE
     Indication: Product used for unknown indication
     Dosage: 0.75 MG, UNKNOWN
     Route: 065
     Dates: start: 20230309
  2. BUTYROLACTONE [Concomitant]
     Active Substance: BUTYROLACTONE
     Indication: Blood pressure measurement
     Dosage: 25 MG

REACTIONS (2)
  - Burning sensation [Unknown]
  - Productive cough [Unknown]

NARRATIVE: CASE EVENT DATE: 20230309
